FAERS Safety Report 7543674-9 (Version None)
Quarter: 2011Q2

REPORT INFORMATION
  Report Type: 
  Country: None (occurrence: None)
  Receive Date: 20110613
  Receipt Date: 20030710
  Transmission Date: 20111010
  Serious: Yes (Death, Hospitalization)
  Sender: FDA-Public Use
  Company Number: PHBS2002CA11285

PATIENT
  Sex: Male
  Weight: 135.7 kg

DRUGS (15)
  1. CLOZAPINE [Concomitant]
  2. ACETYLSALICYLIC ACID ENTERIC COATED [Concomitant]
  3. HALDOL [Concomitant]
  4. CHRONULAC [Concomitant]
  5. ALBUTEROL [Concomitant]
  6. CELEXA [Concomitant]
  7. LASIX [Concomitant]
  8. COMBIVENT [Concomitant]
  9. LIPITOR [Concomitant]
  10. DDAVP [Suspect]
     Dosage: 2 SPRAYS EACH NOSTRIL AT BEDTIME
     Route: 045
  11. SPIRONOLACTONE [Concomitant]
  12. VALPROIC ACID [Concomitant]
  13. CLOZAPINE [Suspect]
     Dates: start: 19980201
  14. PREDNISONE [Concomitant]
     Dosage: DECREASING DOSE
  15. RANITIDINE [Concomitant]

REACTIONS (5)
  - HYPERCAPNIA [None]
  - SLEEP APNOEA SYNDROME [None]
  - ACUTE PULMONARY OEDEMA [None]
  - CARDIAC FAILURE CONGESTIVE [None]
  - LEFT VENTRICULAR HYPERTROPHY [None]
